FAERS Safety Report 7328631-X (Version None)
Quarter: 2011Q1

REPORT INFORMATION
  Report Type: 
  Country: None (occurrence: None)
  Receive Date: 20110225
  Receipt Date: 20110225
  Transmission Date: 20110831
  Serious: No
  Sender: FDA-Public Use
  Company Number: None

PATIENT
  Age: 53 Year
  Sex: Female
  Weight: 61.2356 kg

DRUGS (2)
  1. PEGASYS [Suspect]
     Indication: HEPATITIS C
     Dosage: INJECT PREFILLED ONCE WEEKLY SQ
     Route: 058
     Dates: start: 20100214, end: 20110214
  2. TRIAD ALCOHOL SWABS [Concomitant]

REACTIONS (1)
  - INJECTION SITE PAPULE [None]
